FAERS Safety Report 4387767-6 (Version None)
Quarter: 2004Q2

REPORT INFORMATION
  Report Type: 
  Country: None (occurrence: None)
  Receive Date: 20040630
  Receipt Date: 20040623
  Transmission Date: 20050107
  Serious: Yes (Other)
  Sender: FDA-Public Use
  Company Number: GB-BRISTOL-MYERS SQUIBB COMPANY-12623054

PATIENT
  Age: 25 Year
  Sex: Female
  Weight: 52 kg

DRUGS (5)
  1. SUSTIVA [Suspect]
     Indication: HIV INFECTION
     Route: 048
     Dates: end: 20040609
  2. RIFINAH [Concomitant]
     Indication: TUBERCULOSIS
     Dosage: DOSAGE FORM = TABLETS
     Route: 048
     Dates: start: 20040401
  3. PYRIDOXINE [Concomitant]
     Route: 048
     Dates: start: 20040131
  4. CO-TRIMOXAZOLE [Concomitant]
     Indication: INFECTION PROPHYLAXIS
     Dosage: GIVEN MON-WED-FRI.
     Route: 048
     Dates: start: 20040203
  5. COMBIVIR [Concomitant]
     Indication: HIV INFECTION
     Route: 048
     Dates: start: 20040512, end: 20040521

REACTIONS (4)
  - ALANINE AMINOTRANSFERASE INCREASED [None]
  - NAUSEA [None]
  - NEUTROPHIL COUNT DECREASED [None]
  - VOMITING [None]
